FAERS Safety Report 6414972-7 (Version None)
Quarter: 2009Q4

REPORT INFORMATION
  Report Type: 
  Country: None (occurrence: None)
  Receive Date: 20091026
  Receipt Date: 20090720
  Transmission Date: 20100525
  Serious: No
  Sender: FDA-Public Use
  Company Number: US-ABBOTT-09P-163-0582453-00

PATIENT
  Sex: Female
  Weight: 88.076 kg

DRUGS (5)
  1. LUPRON DEPOT [Suspect]
     Indication: ENDOMETRIOSIS
     Route: 050
     Dates: start: 20040201, end: 20040801
  2. LUPRON DEPOT [Suspect]
     Dates: start: 20090629
  3. LUPRON DEPOT [Suspect]
     Indication: ENDOMETRIOSIS
     Route: 050
     Dates: start: 20090330, end: 20090330
  4. CALCIUM [Concomitant]
     Indication: DRUG USE FOR UNKNOWN INDICATION
     Route: 048
  5. VITAMIN D [Concomitant]
     Indication: DRUG USE FOR UNKNOWN INDICATION
     Route: 048

REACTIONS (6)
  - DRUG INEFFECTIVE [None]
  - HAEMORRHAGE [None]
  - HOT FLUSH [None]
  - NAUSEA [None]
  - POLYMENORRHOEA [None]
  - VOMITING [None]
